FAERS Safety Report 9886214 (Version 1)
Quarter: 2014Q1

REPORT INFORMATION
  Report Type: Spontaneous
  Country: GB (occurrence: GB)
  Receive Date: 20140210
  Receipt Date: 20140210
  Transmission Date: 20141002
  Serious: Yes (Other)
  Sender: FDA-Public Use
  Company Number: GB-PERRIGO-14GB000995

PATIENT
  Age: 44 Year
  Sex: Female

DRUGS (3)
  1. IBUPROFEN 16028/0027 200 MG [Suspect]
     Indication: PAIN
     Dosage: 30 TO 40 TABLETS, QD
     Route: 048
  2. PARACETAMOL [Concomitant]
     Indication: PRODUCT USED FOR UNKNOWN INDICATION
     Dosage: UNKNOWN, UNKNOWN
     Route: 048
  3. CITALOPRAM [Concomitant]
     Indication: PRODUCT USED FOR UNKNOWN INDICATION
     Dosage: UNKNOWN, UNKNOWN
     Route: 048

REACTIONS (5)
  - Overdose [Recovered/Resolved]
  - Nephrocalcinosis [Not Recovered/Not Resolved]
  - Renal tubular acidosis [Recovering/Resolving]
  - Hypokalaemia [Recovering/Resolving]
  - Fatigue [Unknown]
